FAERS Safety Report 14766334 (Version 1)
Quarter: 2018Q2

REPORT INFORMATION
  Report Type: Spontaneous
  Country: BR (occurrence: BR)
  Receive Date: 20180416
  Receipt Date: 20180416
  Transmission Date: 20180711
  Serious: Yes (Other)
  Sender: FDA-Public Use
  Company Number: PHHY2018BR066111

PATIENT
  Sex: Female
  Weight: 72 kg

DRUGS (6)
  1. CLOXAZOLAM [Suspect]
     Active Substance: CLOXAZOLAM
     Indication: PANIC DISORDER
  2. FLUOXETINE [Suspect]
     Active Substance: FLUOXETINE HYDROCHLORIDE
     Indication: ANXIETY
     Route: 065
  3. CLOXAZOLAM [Suspect]
     Active Substance: CLOXAZOLAM
     Indication: BIPOLAR DISORDER
  4. CLOXAZOLAM [Suspect]
     Active Substance: CLOXAZOLAM
     Indication: ANXIETY
     Dosage: 1 DF, QD ALONG WITH FLUOXETIN
     Route: 048
     Dates: start: 2006
  5. FLUOXETINE [Suspect]
     Active Substance: FLUOXETINE HYDROCHLORIDE
     Indication: BIPOLAR DISORDER
  6. FLUOXETINE [Suspect]
     Active Substance: FLUOXETINE HYDROCHLORIDE
     Indication: PANIC DISORDER

REACTIONS (2)
  - Drug dependence [Unknown]
  - Anxiety [Unknown]
